FAERS Safety Report 7799257-9 (Version None)
Quarter: 2011Q4

REPORT INFORMATION
  Report Type: 
  Country: None (occurrence: None)
  Receive Date: 20111006
  Receipt Date: 20110103
  Transmission Date: 20120403
  Serious: No
  Sender: FDA-Public Use
  Company Number: US-GLAXOSMITHKLINE-A0902512A

PATIENT
  Age: 12 Year
  Sex: Female

DRUGS (3)
  1. DUAC [Suspect]
     Indication: ACNE
     Dosage: 1APP PER DAY
     Route: 061
     Dates: start: 20101218, end: 20101220
  2. LOTION [Concomitant]
  3. ACNE MEDICATION [Concomitant]

REACTIONS (5)
  - DRY SKIN [None]
  - DYSGEUSIA [None]
  - FACIAL PAIN [None]
  - ABDOMINAL DISCOMFORT [None]
  - ENERGY INCREASED [None]
